FAERS Safety Report 25805588 (Version 1)
Quarter: 2025Q3

REPORT INFORMATION
  Report Type: Report from Study
  Country: CA (occurrence: CA)
  Receive Date: 20250916
  Receipt Date: 20250916
  Transmission Date: 20251021
  Serious: Yes (Other)
  Sender: CELLTRION
  Company Number: CA-CELLTRION INC.-2025CA032518

PATIENT

DRUGS (11)
  1. ADALIMUMAB [Suspect]
     Active Substance: ADALIMUMAB
     Indication: Rheumatoid arthritis
     Route: 058
  2. ADALIMUMAB [Suspect]
     Active Substance: ADALIMUMAB
     Route: 058
  3. ADALIMUMAB [Suspect]
     Active Substance: ADALIMUMAB
     Route: 058
  4. BACLOFEN [Concomitant]
     Active Substance: BACLOFEN
  5. LEFLUNOMIDE [Concomitant]
     Active Substance: LEFLUNOMIDE
  6. MAGNESIUM [Concomitant]
     Active Substance: MAGNESIUM
  7. METHOTREXATE [Concomitant]
     Active Substance: METHOTREXATE
     Dosage: 6 DOSAGE FORM, 1 EVERY 1 WEEK
  8. PREDNISONE [Concomitant]
     Active Substance: PREDNISONE
  9. POLYETHYLENE GLYCOL 3350 [Concomitant]
     Active Substance: POLYETHYLENE GLYCOL 3350
  10. SYNTHROID [Concomitant]
     Active Substance: LEVOTHYROXINE SODIUM
  11. VITAMIN D NOS [Concomitant]
     Active Substance: CHOLECALCIFEROL\ERGOCALCIFEROL

REACTIONS (6)
  - Bowel movement irregularity [Recovered/Resolved]
  - Brain fog [Recovered/Resolved]
  - COVID-19 [Recovered/Resolved]
  - Intentional dose omission [Recovered/Resolved]
  - Therapeutic response shortened [Recovered/Resolved]
  - Therapeutic response unexpected [Recovered/Resolved]
